FAERS Safety Report 12353977 (Version 2)
Quarter: 2016Q2

REPORT INFORMATION
  Report Type: Report from Study
  Country: CN (occurrence: CN)
  Receive Date: 20160511
  Receipt Date: 20160519
  Transmission Date: 20160815
  Serious: Yes (Hospitalization)
  Sender: FDA-Public Use
  Company Number: CN-ASTRAZENECA-2016SE49237

PATIENT
  Age: 72 Year
  Sex: Male
  Weight: 58.5 kg

DRUGS (2)
  1. SAXAGLIPTIN [Suspect]
     Active Substance: SAXAGLIPTIN
     Indication: TYPE 2 DIABETES MELLITUS
     Route: 048
     Dates: start: 20160107, end: 20160420
  2. ACARBOSE. [Suspect]
     Active Substance: ACARBOSE
     Indication: TYPE 2 DIABETES MELLITUS
     Route: 048
     Dates: start: 20160107, end: 20160420

REACTIONS (1)
  - Lung neoplasm [Recovered/Resolved]

NARRATIVE: CASE EVENT DATE: 20160415
